FAERS Safety Report 5266182-7 (Version None)
Quarter: 2007Q1

REPORT INFORMATION
  Report Type: 
  Country: None (occurrence: None)
  Receive Date: 20070315
  Receipt Date: 20070305
  Transmission Date: 20070707
  Serious: Yes (Hospitalization, Other)
  Sender: FDA-Public Use
  Company Number: FR-JNJFOC-20050102387

PATIENT
  Age: 18 Year
  Sex: Male

DRUGS (2)
  1. DAKTARIN [Suspect]
     Indication: DRUG USE FOR UNKNOWN INDICATION
     Route: 048
  2. INTETRIX [Concomitant]
     Indication: DRUG USE FOR UNKNOWN INDICATION
     Route: 048

REACTIONS (6)
  - CONJUNCTIVITIS [None]
  - EOSINOPHILIA [None]
  - FACE OEDEMA [None]
  - MEDICATION ERROR [None]
  - PRURITUS [None]
  - PRURITUS GENERALISED [None]
